FAERS Safety Report 9745117 (Version 1)
Quarter: 2013Q4

REPORT INFORMATION
  Report Type: Report from Study
  Country: DE (occurrence: DE)
  Receive Date: 20131211
  Receipt Date: 20131211
  Transmission Date: 20140711
  Serious: Yes (Other)
  Sender: FDA-Public Use
  Company Number: DE-ROCHE-1316635

PATIENT
  Sex: 0

DRUGS (2)
  1. RIBAVIRIN [Suspect]
     Indication: CHRONIC HEPATITIS C
     Dosage: 800-1200 MG/DAY
     Route: 065
  2. PEGINTERFERON ALFA-2B [Suspect]
     Indication: CHRONIC HEPATITIS C
     Route: 065

REACTIONS (3)
  - Haemoglobin decreased [Unknown]
  - White blood cell count decreased [Unknown]
  - Platelet count decreased [Unknown]
